FAERS Safety Report 15272783 (Version 2)
Quarter: 2018Q3

REPORT INFORMATION
  Report Type: Spontaneous
  Country: JP (occurrence: JP)
  Receive Date: 20180813
  Receipt Date: 20180822
  Transmission Date: 20181010
  Serious: Yes (Hospitalization, Other)
  Sender: FDA-Public Use
  Company Number: JP-FERRINGPH-2018FE04263

PATIENT

DRUGS (8)
  1. MINIRINMELT [Suspect]
     Active Substance: DESMOPRESSIN ACETATE
     Indication: DIABETES INSIPIDUS
     Dosage: 30 ?G, 2 TIMES DAILY (IN THE MORNING AND IN THE EVENING)
     Route: 048
  2. E KEPPRA [Concomitant]
     Active Substance: LEVETIRACETAM
  3. BAYASPIRIN [Concomitant]
     Active Substance: ASPIRIN
  4. CORTRIL [Concomitant]
     Active Substance: HYDROCORTISONE
  5. ROSUVASTATIN                       /01588602/ [Concomitant]
     Active Substance: ROSUVASTATIN CALCIUM
  6. NEXIUM [Concomitant]
     Active Substance: ESOMEPRAZOLE MAGNESIUM
  7. THYRADIN?S [Concomitant]
     Active Substance: LEVOTHYROXINE
  8. LAMICTAL [Concomitant]
     Active Substance: LAMOTRIGINE

REACTIONS (4)
  - Sepsis [Unknown]
  - Urinary tract infection [Unknown]
  - Wrong technique in product usage process [Unknown]
  - Compression fracture [Unknown]
